FAERS Safety Report 19189038 (Version 3)
Quarter: 2021Q2

REPORT INFORMATION
  Report Type: Spontaneous
  Country: US (occurrence: US)
  Receive Date: 20210428
  Receipt Date: 20210518
  Transmission Date: 20210717
  Serious: No
  Sender: FDA-Public Use
  Company Number: US-SA-2021SA137149

PATIENT
  Sex: Female

DRUGS (2)
  1. PFIZER?BIONTECH COVID?19 VACCINE [Suspect]
     Active Substance: TOZINAMERAN
     Indication: COVID-19 IMMUNISATION
     Dosage: UNK
     Dates: start: 20210323
  2. DUPIXENT [Suspect]
     Active Substance: DUPILUMAB
     Indication: ASTHMA
     Dosage: 300 MG, QOW
     Route: 058
     Dates: start: 201906

REACTIONS (12)
  - Drug hypersensitivity [Unknown]
  - Diarrhoea [Unknown]
  - Allergy to vaccine [Unknown]
  - Eyelid pain [Unknown]
  - Therapy interrupted [Unknown]
  - Conjunctivitis [Unknown]
  - Rash [Unknown]
  - Pruritus [Unknown]
  - Fatigue [Unknown]
  - Pain of skin [Unknown]
  - Lethargy [Unknown]
  - Neck pain [Unknown]

NARRATIVE: CASE EVENT DATE: 202104
